FAERS Safety Report 7866582-2 (Version None)
Quarter: 2011Q4

REPORT INFORMATION
  Report Type: 
  Country: None (occurrence: None)
  Receive Date: 20111028
  Receipt Date: 20110708
  Transmission Date: 20120403
  Serious: No
  Sender: FDA-Public Use
  Company Number: US-GLAXOSMITHKLINE-A0936072A

PATIENT
  Age: 83 Year
  Sex: Male

DRUGS (8)
  1. BISOPROLOL [Concomitant]
  2. ADVAIR DISKUS 100/50 [Suspect]
     Indication: CHRONIC OBSTRUCTIVE PULMONARY DISEASE
     Dosage: 1PUFF TWICE PER DAY
     Route: 055
     Dates: start: 20110101
  3. COUMADIN [Concomitant]
  4. VYTORIN [Concomitant]
  5. COQ10 [Concomitant]
  6. DIOVAN [Concomitant]
  7. MULTI-VITAMIN [Concomitant]
  8. SAW PALMETTO [Concomitant]

REACTIONS (1)
  - OROPHARYNGEAL DISCOMFORT [None]
